FAERS Safety Report 9475964 (Version 1)
Quarter: 2013Q3

REPORT INFORMATION
  Report Type: Spontaneous
  Country: JP (occurrence: JP)
  Receive Date: 20130826
  Receipt Date: 20130826
  Transmission Date: 20140515
  Serious: Yes (Hospitalization)
  Sender: FDA-Public Use
  Company Number: JP-PFIZER INC-2013244340

PATIENT
  Age: 43 Year
  Sex: Male

DRUGS (1)
  1. GABAPEN [Suspect]
     Dosage: 1400 MG/DAY (400 MG AT MORNING, 600 MG AT NOON, 400 MG AT EVENING)

REACTIONS (1)
  - Abdominal neoplasm [Unknown]
